FAERS Safety Report 23446640 (Version 1)
Quarter: 2024Q1

REPORT INFORMATION
  Report Type: Spontaneous
  Country: US (occurrence: US)
  Receive Date: 20240126
  Receipt Date: 20240126
  Transmission Date: 20240410
  Serious: No
  Sender: FDA-Public Use
  Company Number: US-PFIZER INC-202400024829

PATIENT
  Age: 67 Year
  Sex: Female

DRUGS (3)
  1. IBRANCE [Suspect]
     Active Substance: PALBOCICLIB
     Dosage: 1 CAPSULE DAILY FOR 21 DAYS ON FOLLOWED BY 7 DAYS OFF
     Dates: start: 20221104
  2. ANASTROZOLE [Concomitant]
     Active Substance: ANASTROZOLE
  3. DEXAMETHASONE [Concomitant]
     Active Substance: DEXAMETHASONE

REACTIONS (3)
  - Neoplasm progression [Not Recovered/Not Resolved]
  - Swelling face [Not Recovered/Not Resolved]
  - Hyperphagia [Not Recovered/Not Resolved]
